FAERS Safety Report 5227791-4 (Version None)
Quarter: 2007Q1

REPORT INFORMATION
  Report Type: 
  Country: None (occurrence: None)
  Receive Date: 20070202
  Receipt Date: 20061211
  Transmission Date: 20070707
  Serious: Yes (Other)
  Sender: FDA-Public Use
  Company Number: JP-PFIZER INC-2006148929

PATIENT
  Age: 29 Year
  Sex: Male

DRUGS (4)
  1. HALCION [Suspect]
     Indication: INSOMNIA
     Route: 048
  2. ROHYPNOL [Suspect]
     Route: 048
  3. DEPAS [Suspect]
     Route: 048
  4. NITRAZEPAM [Suspect]
     Route: 048

REACTIONS (6)
  - BLOOD PRESSURE SYSTOLIC INCREASED [None]
  - DEPRESSED LEVEL OF CONSCIOUSNESS [None]
  - GAIT DISTURBANCE [None]
  - LOGORRHOEA [None]
  - OVERDOSE [None]
  - SPEECH DISORDER [None]
